FAERS Safety Report 16886264 (Version 1)
Quarter: 2019Q4

REPORT INFORMATION
  Report Type: Spontaneous
  Country: US (occurrence: US)
  Receive Date: 20191004
  Receipt Date: 20191004
  Transmission Date: 20200122
  Serious: Yes (Other)
  Sender: FDA-Public Use
  Company Number: US-ALEXION PHARMACEUTICALS INC.-A201915058

PATIENT
  Age: 30 Year
  Sex: Female

DRUGS (1)
  1. SOLIRIS [Suspect]
     Active Substance: ECULIZUMAB
     Indication: MYASTHENIA GRAVIS
     Dosage: UNK,UNK
     Route: 065
     Dates: start: 201908

REACTIONS (3)
  - Adenovirus infection [Recovering/Resolving]
  - Nasopharyngitis [Recovering/Resolving]
  - Enterovirus infection [Unknown]

NARRATIVE: CASE EVENT DATE: 201909
